FAERS Safety Report 21002189 (Version 1)
Quarter: 2022Q2

REPORT INFORMATION
  Report Type: Spontaneous
  Country: NL (occurrence: NL)
  Receive Date: 20220624
  Receipt Date: 20220624
  Transmission Date: 20220721
  Serious: Yes (Death, Life-Threatening)
  Sender: FDA-Public Use
  Company Number: None

PATIENT
  Age: 62 Year
  Sex: Female
  Weight: 60 kg

DRUGS (4)
  1. CAPECITABINE [Suspect]
     Active Substance: CAPECITABINE
     Indication: Breast cancer metastatic
     Dosage: 2 X A DAY 4 PIECE, TABLET FO, BRAND NAME NOT SPECIFIED
     Dates: start: 20220401, end: 20220417
  2. EUTHYROX [Concomitant]
     Active Substance: LEVOTHYROXINE SODIUM
     Indication: Product used for unknown indication
     Dosage: LEVOTHYROXINE TABLET 50UG (NATRIUM) / EUTHYROX TABLET 50MCG,THERAPY START DATE AND END DATE : ASKU
  3. METHIMAZOLE [Concomitant]
     Active Substance: METHIMAZOLE
     Indication: Product used for unknown indication
     Dosage: STRENGTH: 10 MG, BRAND NAME NOT SPECIFIED, THERAPY START DATE AND END DATE : ASKU
  4. PANTOPRAZOLE SODIUM [Concomitant]
     Active Substance: PANTOPRAZOLE SODIUM
     Indication: Product used for unknown indication
     Dosage: TABLET MSR, STRENGTH: 40 MG, THERAPY START DATE AND END DATE : ASKU, BRAND NAME NOT SPECIFIED

REACTIONS (2)
  - Mucosal inflammation [Fatal]
  - Diarrhoea [Fatal]

NARRATIVE: CASE EVENT DATE: 20220417
